FAERS Safety Report 10557299 (Version 3)
Quarter: 2015Q1

REPORT INFORMATION
  Report Type: Report from Study
  Country: US (occurrence: US)
  Receive Date: 20141031
  Receipt Date: 20150109
  Transmission Date: 20150720
  Serious: Yes (Hospitalization, Other)
  Sender: FDA-Public Use
  Company Number: US-SA-2014SA146837

PATIENT
  Age: 39 Year
  Sex: Female

DRUGS (1)
  1. AUBAGIO [Suspect]
     Active Substance: TERIFLUNOMIDE
     Indication: MULTIPLE SCLEROSIS
     Route: 048
     Dates: start: 20130901

REACTIONS (8)
  - Cholecystectomy [Unknown]
  - Nasopharyngitis [Recovering/Resolving]
  - Pyrexia [Recovering/Resolving]
  - Fatigue [Not Recovered/Not Resolved]
  - Malaise [Recovering/Resolving]
  - Appendicitis [Unknown]
  - Gynaecological examination abnormal [Unknown]
  - Pulmonary congestion [Recovering/Resolving]

NARRATIVE: CASE EVENT DATE: 201309
